FAERS Safety Report 7720075-1 (Version None)
Quarter: 2011Q3

REPORT INFORMATION
  Report Type: 
  Country: None (occurrence: None)
  Receive Date: 20110824
  Receipt Date: 20110811
  Transmission Date: 20111222
  Serious: Yes (Hospitalization)
  Sender: FDA-Public Use
  Company Number: AUR-APL-2011-04696

PATIENT
  Age: 70 Year
  Sex: Male

DRUGS (5)
  1. SIMVASTATIN [Concomitant]
  2. BISOPROLOL FUMARATE [Concomitant]
  3. RAMIPRIL [Concomitant]
  4. WARFARIN SODIUM [Concomitant]
  5. TERBINAFINE HCL [Suspect]
     Indication: ONYCHOMYCOSIS
     Dosage: (250 MG), ORAL
     Route: 048
     Dates: start: 20110603, end: 20110714

REACTIONS (1)
  - MAJOR DEPRESSION [None]
